FAERS Safety Report 7309933-X (Version None)
Quarter: 2011Q1

REPORT INFORMATION
  Report Type: 
  Country: None (occurrence: None)
  Receive Date: 20110224
  Receipt Date: 20110209
  Transmission Date: 20110831
  Serious: Yes (Other)
  Sender: FDA-Public Use
  Company Number: JP-CELGENEUS-087-21880-10120485

PATIENT
  Sex: Male
  Weight: 52 kg

DRUGS (8)
  1. AMOBAN [Concomitant]
     Indication: INSOMNIA
     Route: 048
     Dates: start: 20100930, end: 20101018
  2. REVLIMID [Suspect]
     Indication: MULTIPLE MYELOMA
     Route: 048
     Dates: start: 20100930, end: 20101008
  3. DEXART [Concomitant]
     Indication: MULTIPLE MYELOMA
     Route: 041
     Dates: start: 20100930, end: 20101018
  4. SHOKENCHUTO [Concomitant]
     Indication: PROPHYLAXIS
     Route: 048
     Dates: start: 20100930, end: 20101018
  5. MAGMITT [Concomitant]
     Indication: PROPHYLAXIS
     Route: 048
     Dates: start: 20100930, end: 20101018
  6. ALDACTONE [Concomitant]
     Indication: HYPERTENSION
     Route: 048
     Dates: start: 20100930, end: 20101018
  7. PARIET [Concomitant]
     Indication: PROPHYLAXIS
     Route: 048
     Dates: start: 20100930, end: 20101018
  8. PLATELETS [Concomitant]
     Route: 051
     Dates: start: 20100101, end: 20100101

REACTIONS (2)
  - NEUTROPENIA [None]
  - HAEMORRHAGE [None]
